FAERS Safety Report 6958442-6 (Version None)
Quarter: 2010Q3

REPORT INFORMATION
  Report Type: 
  Country: None (occurrence: None)
  Receive Date: 20100831
  Receipt Date: 20100818
  Transmission Date: 20110219
  Serious: Yes (Hospitalization)
  Sender: FDA-Public Use
  Company Number: DE-CELGENEUS-062-21880-10081790

PATIENT
  Age: 67 Year
  Sex: Male
  Weight: 77 kg

DRUGS (16)
  1. REVLIMID [Suspect]
     Indication: MULTIPLE MYELOMA
     Route: 048
     Dates: start: 20100311
  2. REVLIMID [Suspect]
     Route: 048
     Dates: start: 20100803, end: 20100816
  3. DEXAMETHASONE [Suspect]
     Indication: MULTIPLE MYELOMA
     Route: 048
     Dates: start: 20100311
  4. DEXAMETHASONE [Suspect]
     Dosage: 192MG MONTHLY
     Route: 048
     Dates: start: 20100506, end: 20100525
  5. DEXAMETHASONE [Suspect]
     Dosage: 64MG MONTHLY
     Route: 048
     Dates: start: 20100624, end: 20100715
  6. DEXAMETHASONE [Suspect]
     Route: 048
     Dates: start: 20100803, end: 20100816
  7. CYCLOPHOSPHAMIDE [Suspect]
     Indication: MULTIPLE MYELOMA
     Route: 048
     Dates: start: 20100311
  8. CYCLOPHOSPHAMIDE [Suspect]
     Route: 048
     Dates: start: 20100624, end: 20100701
  9. CYCLOPHOSPHAMIDE [Suspect]
     Route: 048
     Dates: start: 20100803, end: 20100816
  10. DURAGESIC-100 [Concomitant]
     Indication: PAIN
     Route: 062
     Dates: start: 20100728
  11. FRAXIPARIN [Concomitant]
     Indication: ANTICOAGULANT THERAPY
     Route: 058
     Dates: start: 20070101
  12. LEVOTHYROXINE SODIUM W/POTASSIUM IODIDE [Concomitant]
     Indication: THYROID DISORDER
     Route: 048
     Dates: start: 19950101
  13. PANTOPRAZOLE [Concomitant]
     Indication: PROPHYLAXIS
     Route: 048
     Dates: start: 20020101
  14. ATENOLOL [Concomitant]
     Indication: BLOOD PRESSURE ABNORMAL
     Route: 048
  15. TORSEMIDE [Concomitant]
     Route: 048
  16. LMWH [Concomitant]
     Indication: PROPHYLAXIS
     Route: 065

REACTIONS (2)
  - DYSPNOEA [None]
  - GENERAL PHYSICAL HEALTH DETERIORATION [None]
